FAERS Safety Report 16349294 (Version 1)
Quarter: 2019Q2

REPORT INFORMATION
  Report Type: Spontaneous
  Country: US (occurrence: US)
  Receive Date: 20190419
  Receipt Date: 20190419
  Transmission Date: 20190711
  Serious: Yes (Death)
  Sender: FDA-Public Use
  Company Number: None

PATIENT
  Age: 77 Year
  Sex: Male

DRUGS (2)
  1. PROMACTA [Concomitant]
     Active Substance: ELTROMBOPAG OLAMINE
  2. SANDIMMUNE [Suspect]
     Active Substance: CYCLOSPORINE
     Dates: start: 20180802, end: 20190415

REACTIONS (1)
  - Death [None]
